FAERS Safety Report 20795691 (Version 1)
Quarter: 2022Q2

REPORT INFORMATION
  Report Type: Other
  Country: JP (occurrence: JP)
  Receive Date: 20220506
  Receipt Date: 20220506
  Transmission Date: 20220721
  Serious: Yes (Other)
  Sender: FDA-Public Use
  Company Number: JP-CHUGAI-A2021017673ROCHE

PATIENT
  Age: 82 Year
  Sex: Female
  Weight: 42 kg

DRUGS (9)
  1. ATEZOLIZUMAB [Suspect]
     Active Substance: ATEZOLIZUMAB
     Indication: Lung adenocarcinoma
     Dosage: DOSE INTERVAL UNCERTAINTY
     Route: 041
     Dates: start: 20210215
  2. ATEZOLIZUMAB [Suspect]
     Active Substance: ATEZOLIZUMAB
     Route: 041
     Dates: start: 20210330, end: 20210622
  3. ATEZOLIZUMAB [Suspect]
     Active Substance: ATEZOLIZUMAB
     Route: 041
     Dates: start: 20210720, end: 20210831
  4. CARBOPLATIN [Suspect]
     Active Substance: CARBOPLATIN
     Indication: Lung adenocarcinoma
     Route: 041
     Dates: start: 20210215, end: 20210215
  5. CARBOPLATIN [Suspect]
     Active Substance: CARBOPLATIN
     Route: 041
     Dates: start: 20210309, end: 20210309
  6. PEMETREXED [Suspect]
     Active Substance: PEMETREXED
     Indication: Lung adenocarcinoma
     Route: 041
     Dates: start: 20210215, end: 20210215
  7. PEMETREXED [Suspect]
     Active Substance: PEMETREXED
     Dosage: DOSE INTERVAL UNCERTAINTY
     Route: 041
     Dates: start: 20210330
  8. PEMETREXED [Suspect]
     Active Substance: PEMETREXED
     Dosage: DOSE INTERVAL UNCERTAINTY
     Route: 041
     Dates: start: 20210309, end: 20210309
  9. PEMETREXED [Suspect]
     Active Substance: PEMETREXED
     Dosage: DOSE INTERVAL UNCERTAINTY
     Route: 041
     Dates: start: 20210720, end: 20210831

REACTIONS (6)
  - Pulmonary toxicity [Recovering/Resolving]
  - Platelet count decreased [Recovered/Resolved]
  - Neutrophil count decreased [Recovered/Resolved]
  - Anaemia [Recovered/Resolved]
  - Constipation [Not Recovered/Not Resolved]
  - Taste disorder [Not Recovered/Not Resolved]

NARRATIVE: CASE EVENT DATE: 20210224
